FAERS Safety Report 17457933 (Version 1)
Quarter: 2020Q1

REPORT INFORMATION
  Report Type: Spontaneous
  Country: TR (occurrence: TR)
  Receive Date: 20200225
  Receipt Date: 20200225
  Transmission Date: 20200409
  Serious: Yes (Hospitalization, Other)
  Sender: FDA-Public Use
  Company Number: NVSC2020TR047031

PATIENT
  Age: 62 Year
  Sex: Male

DRUGS (2)
  1. ONEPTUS [Suspect]
     Active Substance: SACUBITRIL\VALSARTAN
     Indication: CARDIAC FAILURE
     Dosage: 94 MG, BID(MORNING AND EVENING)
     Route: 065
  2. ONEPTUS [Suspect]
     Active Substance: SACUBITRIL\VALSARTAN
     Dosage: 49 MG, BID(MORNING AND EVENING)
     Route: 065

REACTIONS (2)
  - Myocardial infarction [Unknown]
  - Cerebral haemorrhage [Unknown]
